FAERS Safety Report 5977198-7 (Version None)
Quarter: 2008Q4

REPORT INFORMATION
  Report Type: 
  Country: None (occurrence: None)
  Receive Date: 20081203
  Receipt Date: 20081124
  Transmission Date: 20090506
  Serious: Yes (Hospitalization)
  Sender: FDA-Public Use
  Company Number: US-BIOGENIDEC-2008BI026114

PATIENT
  Age: 60 Year
  Sex: Male

DRUGS (3)
  1. TYSABRI [Suspect]
     Indication: MULTIPLE SCLEROSIS
     Route: 042
     Dates: start: 20050125, end: 20050101
  2. TYSABRI [Suspect]
     Route: 042
     Dates: start: 20061204, end: 20080901
  3. COUMADIN [Concomitant]

REACTIONS (1)
  - PULMONARY EMBOLISM [None]
